FAERS Safety Report 10921678 (Version 1)
Quarter: 2015Q1

REPORT INFORMATION
  Report Type: Spontaneous
  Country: ES (occurrence: None)
  Receive Date: 20150312
  Receipt Date: 20150312
  Transmission Date: 20150721
  Serious: Yes (Hospitalization, Other)
  Sender: FDA-Public Use
  Company Number: 2273163

PATIENT
  Age: 67 Year
  Sex: Female

DRUGS (8)
  1. MIRTAZAPINE. [Concomitant]
     Active Substance: MIRTAZAPINE
  2. LORAZEPAM. [Concomitant]
     Active Substance: LORAZEPAM
  3. OXALIPLATIN. [Suspect]
     Active Substance: OXALIPLATIN
     Indication: ADENOCARCINOMA OF COLON
     Dosage: 4 CYCLES, UNKNOWN, UNKNOWN
     Dates: start: 200908
  4. RALTITREXED DISODIUM [Suspect]
     Active Substance: RALTITREXED
     Indication: ADENOCARCINOMA OF COLON
     Dosage: 4 CYCLES, UNKNOWN, UNKNOWN
     Dates: start: 201002, end: 201004
  5. IRINOTECAN HYDROCHLORIDE. [Suspect]
     Active Substance: IRINOTECAN HYDROCHLORIDE
     Indication: ADENOCARCINOMA OF COLON
  6. FOLINIC ACID [Suspect]
     Active Substance: LEUCOVORIN
     Indication: ADENOCARCINOMA OF COLON
     Dosage: 4 CYCLES, UNKNOWN, UNKNOWN
     Dates: start: 200908, end: 200910
  7. BEVACIZUMAB [Suspect]
     Active Substance: BEVACIZUMAB
     Indication: ADENOCARCINOMA OF COLON
     Dosage: 4 CYCLES, UNKNOWN, UNKNOWN
     Dates: start: 200908, end: 200910
  8. FLUOROURACIL. [Suspect]
     Active Substance: FLUOROURACIL
     Indication: ADENOCARCINOMA OF COLON
     Dosage: 4 CYCLES, UNKNOWN, UNKNOWN?
     Dates: start: 200908

REACTIONS (6)
  - Myocardial ischaemia [None]
  - Asthenia [None]
  - Neuropathy peripheral [None]
  - Therapeutic response decreased [None]
  - Diarrhoea [None]
  - Gastrointestinal toxicity [None]
